FAERS Safety Report 5189995-9 (Version None)
Quarter: 2006Q4

REPORT INFORMATION
  Report Type: 
  Country: None (occurrence: None)
  Receive Date: 20061221
  Receipt Date: 20061205
  Transmission Date: 20070319
  Serious: Yes (Hospitalization, Other)
  Sender: FDA-Public Use
  Company Number: US-ELI_LILLY_AND_COMPANY-US200612001036

PATIENT
  Age: 54 Year
  Sex: Male
  Weight: 99.773 kg

DRUGS (3)
  1. CYMBALTA [Suspect]
     Indication: DEPRESSION
     Dosage: 120 MG, 2/D
     Route: 048
     Dates: start: 20061002, end: 20061012
  2. CLONIDINE [Concomitant]
     Indication: HYPERTENSION
  3. ALAPRIL [Concomitant]
     Indication: HYPERTENSION

REACTIONS (3)
  - BLOOD PRESSURE INCREASED [None]
  - LOSS OF CONSCIOUSNESS [None]
  - MENINGITIS VIRAL [None]
